FAERS Safety Report 13782764 (Version 3)
Quarter: 2017Q3

REPORT INFORMATION
  Report Type: Spontaneous
  Country: TR (occurrence: TR)
  Receive Date: 20170724
  Receipt Date: 20170824
  Transmission Date: 20171127
  Serious: Yes (Hospitalization, Other)
  Sender: FDA-Public Use
  Company Number: TR-JNJFOC-20170716156

PATIENT
  Age: 55 Year
  Sex: Female

DRUGS (12)
  1. FENTANYL CITRATE. [Suspect]
     Active Substance: FENTANYL CITRATE
     Indication: GENERAL ANAESTHESIA
     Route: 065
  2. TRAMADOL HYDROCHLORIDE. [Suspect]
     Active Substance: TRAMADOL HYDROCHLORIDE
     Indication: POSTOPERATIVE ANALGESIA
     Route: 065
  3. SEVOFLURANE. [Suspect]
     Active Substance: SEVOFLURANE
     Indication: GENERAL ANAESTHESIA
     Dosage: DOSE: 1/100 UNITS UNSPECIFIED
     Route: 065
  4. DEXKETOPROFEN TROMETAMOL [Suspect]
     Active Substance: DEXKETOPROFEN TROMETAMOL
     Indication: GENERAL ANAESTHESIA
     Route: 042
  5. PROPOFOL. [Suspect]
     Active Substance: PROPOFOL
     Indication: GENERAL ANAESTHESIA
     Route: 065
  6. RANITIDINE. [Suspect]
     Active Substance: RANITIDINE
     Indication: PROCEDURAL PAIN
     Route: 042
  7. CEFAZOLIN [Suspect]
     Active Substance: CEFAZOLIN
     Indication: PROCEDURAL PAIN
     Route: 042
  8. ENOXAPARIN [Suspect]
     Active Substance: ENOXAPARIN
     Indication: PROCEDURAL PAIN
     Route: 042
  9. REMIFENTANIL [Suspect]
     Active Substance: REMIFENTANIL
     Indication: GENERAL ANAESTHESIA
     Dosage: 40 CC SF 10 ML/HR BY DILUTING
     Route: 065
  10. VECURONIUM [Suspect]
     Active Substance: VECURONIUM BROMIDE
     Indication: GENERAL ANAESTHESIA
     Dosage: AT A DOSE OF 7 MG INITIALLY AND 2 MG EVERY 45 MINUTES
     Route: 065
  11. ATROPINE. [Suspect]
     Active Substance: ATROPINE
     Indication: DEPRESSED LEVEL OF CONSCIOUSNESS
     Route: 065
  12. NEOSTIGMINE [Suspect]
     Active Substance: NEOSTIGMINE
     Indication: DEPRESSED LEVEL OF CONSCIOUSNESS
     Route: 065

REACTIONS (3)
  - Glaucoma [Recovering/Resolving]
  - Product use in unapproved indication [Unknown]
  - Off label use [Unknown]
